FAERS Safety Report 5783038-1 (Version None)
Quarter: 2008Q2

REPORT INFORMATION
  Report Type: 
  Country: None (occurrence: None)
  Receive Date: 20080619
  Receipt Date: 20080609
  Transmission Date: 20081010
  Serious: Yes (Death, Other)
  Sender: FDA-Public Use
  Company Number: 285-20785-08041551

PATIENT
  Age: 62 Year
  Sex: Male
  Weight: 70 kg

DRUGS (4)
  1. THALIDOMIDE [Suspect]
     Indication: MULTIPLE MYELOMA
     Dosage: 150 MG, PER DAY, ORAL
     Route: 048
  2. TYLENOL (PARACETAMOL) (650 MILLIGRAM) [Concomitant]
  3. MUCOPECT (AMBROXOL HYDROCHLORIDE) (30 MILLIGRAM) [Concomitant]
  4. CIPROBAY (CIPROFLOXACIN HYDROCHLORIDE) (250 MILLIGRAM) [Concomitant]

REACTIONS (5)
  - DYSPNOEA [None]
  - HYPOXIA [None]
  - PNEUMONIA ASPIRATION [None]
  - SOMNOLENCE [None]
  - TACHYCARDIA [None]
